FAERS Safety Report 5295236-4 (Version None)
Quarter: 2007Q2

REPORT INFORMATION
  Report Type: 
  Country: None (occurrence: None)
  Receive Date: 20070412
  Receipt Date: 20070402
  Transmission Date: 20071010
  Serious: Yes (Death, Hospitalization)
  Sender: FDA-Public Use
  Company Number: JP-PFIZER INC-2007003092

PATIENT
  Sex: Female
  Weight: 45.4 kg

DRUGS (5)
  1. SUTENT [Suspect]
     Indication: GASTROINTESTINAL STROMAL TUMOUR
     Route: 048
     Dates: start: 20061101, end: 20070117
  2. FUROSEMIDE [Concomitant]
     Dosage: DAILY DOSE:40MG
     Route: 048
  3. LEVOTHYROXINE SODIUM [Concomitant]
     Dosage: DAILY DOSE:100MCG
     Route: 048
     Dates: start: 20061206
  4. ANTIINFLAMMATORY/ANTIRHEUMATIC PRODUCTS [Concomitant]
  5. AMLODIPINE BESYLATE [Concomitant]

REACTIONS (1)
  - CEREBRAL INFARCTION [None]
